FAERS Safety Report 14541737 (Version 1)
Quarter: 2018Q1

REPORT INFORMATION
  Report Type: Spontaneous
  Country: BR (occurrence: BR)
  Receive Date: 20180216
  Receipt Date: 20180216
  Transmission Date: 20180509
  Serious: Yes (Hospitalization)
  Sender: FDA-Public Use
  Company Number: BR-TEVA-2018-BR-857053

PATIENT
  Age: 43 Year
  Sex: Female
  Weight: 65 kg

DRUGS (3)
  1. DIAZEPAM. [Suspect]
     Active Substance: DIAZEPAM
     Indication: DRUG THERAPY
     Dosage: USE ONLY WHEN NECESSARY (EVENTUALLY)
  2. LITHIUM CARBONATE. [Suspect]
     Active Substance: LITHIUM CARBONATE
     Indication: SCHIZOPHRENIA
     Dosage: 900 MILLIGRAM DAILY;
     Route: 048
     Dates: start: 201502
  3. RISPERIDONE. [Suspect]
     Active Substance: RISPERIDONE
     Indication: DRUG THERAPY
     Dosage: 6 MILLIGRAM DAILY;
     Dates: start: 201602

REACTIONS (7)
  - Dental operation [Unknown]
  - Feeling abnormal [Unknown]
  - Drug interaction [Unknown]
  - Feeling cold [Unknown]
  - Adverse reaction [Unknown]
  - Malaise [Unknown]
  - Skin warm [Unknown]

NARRATIVE: CASE EVENT DATE: 201502
